FAERS Safety Report 7539610-1 (Version None)
Quarter: 2011Q2

REPORT INFORMATION
  Report Type: 
  Country: None (occurrence: None)
  Receive Date: 20110610
  Receipt Date: 20110601
  Transmission Date: 20111010
  Serious: Yes (Disabling)
  Sender: FDA-Public Use
  Company Number: GB-JNJFOC-20110601958

PATIENT
  Sex: Male

DRUGS (7)
  1. ABIRATERONE ACETATE [Suspect]
     Indication: PROSTATE CANCER METASTATIC
     Route: 048
     Dates: start: 20071029
  2. HYDROCORTISONE [Suspect]
     Indication: PROSTATE CANCER METASTATIC
     Route: 048
  3. FUROSEMIDE [Concomitant]
     Indication: OEDEMA
     Route: 048
  4. DICLOFENAC SODIUM [Concomitant]
     Indication: PAIN
     Route: 048
  5. ACETAMINOPHEN [Concomitant]
     Indication: PAIN
     Route: 048
  6. NITROGLYCERIN [Concomitant]
     Indication: MYOCARDIAL ISCHAEMIA
     Route: 062
  7. CANDESARTAN CILEXETIL [Concomitant]
     Indication: HYPERTENSION
     Route: 048

REACTIONS (1)
  - OSTEOPOROTIC FRACTURE [None]
